FAERS Safety Report 26010787 (Version 1)
Quarter: 2025Q4

REPORT INFORMATION
  Report Type: Spontaneous
  Country: JP (occurrence: JP)
  Receive Date: 20251107
  Receipt Date: 20251107
  Transmission Date: 20260118
  Serious: Yes (Other)
  Sender: MYLAN
  Company Number: JP-MYLANLABS-2025M1093717

PATIENT
  Age: 65 Year
  Sex: Female

DRUGS (36)
  1. ANHIBA [Suspect]
     Active Substance: ACETAMINOPHEN
     Indication: Pyrexia
  2. ANHIBA [Suspect]
     Active Substance: ACETAMINOPHEN
     Route: 065
  3. ANHIBA [Suspect]
     Active Substance: ACETAMINOPHEN
     Route: 065
  4. ANHIBA [Suspect]
     Active Substance: ACETAMINOPHEN
  5. BUSULFAN [Suspect]
     Active Substance: BUSULFAN
     Indication: Bone marrow conditioning regimen
  6. BUSULFAN [Suspect]
     Active Substance: BUSULFAN
     Route: 042
  7. BUSULFAN [Suspect]
     Active Substance: BUSULFAN
     Route: 042
  8. BUSULFAN [Suspect]
     Active Substance: BUSULFAN
  9. TACROLIMUS [Suspect]
     Active Substance: TACROLIMUS
     Indication: Prophylaxis against graft versus host disease
  10. TACROLIMUS [Suspect]
     Active Substance: TACROLIMUS
     Route: 065
  11. TACROLIMUS [Suspect]
     Active Substance: TACROLIMUS
     Route: 065
  12. TACROLIMUS [Suspect]
     Active Substance: TACROLIMUS
  13. IMMUNE GLOBULIN NOS [Suspect]
     Active Substance: IMMUNE GLOBULIN NOS
     Indication: Adenoviral haemorrhagic cystitis
     Dosage: 0.01 G/KG
  14. IMMUNE GLOBULIN NOS [Suspect]
     Active Substance: IMMUNE GLOBULIN NOS
     Dosage: 0.01 G/KG
     Route: 042
  15. IMMUNE GLOBULIN NOS [Suspect]
     Active Substance: IMMUNE GLOBULIN NOS
     Dosage: 0.01 G/KG
     Route: 042
  16. IMMUNE GLOBULIN NOS [Suspect]
     Active Substance: IMMUNE GLOBULIN NOS
     Dosage: 0.01 G/KG
  17. FLUDARABINE [Concomitant]
     Active Substance: FLUDARABINE PHOSPHATE
     Indication: Bone marrow conditioning regimen
  18. FLUDARABINE [Concomitant]
     Active Substance: FLUDARABINE PHOSPHATE
     Route: 065
  19. FLUDARABINE [Concomitant]
     Active Substance: FLUDARABINE PHOSPHATE
     Route: 065
  20. FLUDARABINE [Concomitant]
     Active Substance: FLUDARABINE PHOSPHATE
  21. LAPINE T-LYMPHOCYTE IMMUNE GLOBULIN [Concomitant]
     Active Substance: LAPINE T-LYMPHOCYTE IMMUNE GLOBULIN
     Indication: Prophylaxis against graft versus host disease
     Dosage: ON DAY-1
  22. LAPINE T-LYMPHOCYTE IMMUNE GLOBULIN [Concomitant]
     Active Substance: LAPINE T-LYMPHOCYTE IMMUNE GLOBULIN
     Dosage: ON DAY-1
     Route: 065
  23. LAPINE T-LYMPHOCYTE IMMUNE GLOBULIN [Concomitant]
     Active Substance: LAPINE T-LYMPHOCYTE IMMUNE GLOBULIN
     Dosage: ON DAY-1
     Route: 065
  24. LAPINE T-LYMPHOCYTE IMMUNE GLOBULIN [Concomitant]
     Active Substance: LAPINE T-LYMPHOCYTE IMMUNE GLOBULIN
     Dosage: ON DAY-1
  25. METHOTREXATE [Concomitant]
     Active Substance: METHOTREXATE
     Indication: Prophylaxis against graft versus host disease
     Dosage: ON DAY-1
  26. METHOTREXATE [Concomitant]
     Active Substance: METHOTREXATE
     Dosage: ON DAY-1
  27. METHOTREXATE [Concomitant]
     Active Substance: METHOTREXATE
     Dosage: ON DAY-1
     Route: 065
  28. METHOTREXATE [Concomitant]
     Active Substance: METHOTREXATE
     Dosage: ON DAY-1
     Route: 065
  29. METHOTREXATE [Concomitant]
     Active Substance: METHOTREXATE
     Dosage: ON DAYS 3 AND 6
  30. METHOTREXATE [Concomitant]
     Active Substance: METHOTREXATE
     Dosage: ON DAYS 3 AND 6
  31. METHOTREXATE [Concomitant]
     Active Substance: METHOTREXATE
     Dosage: ON DAYS 3 AND 6
     Route: 065
  32. METHOTREXATE [Concomitant]
     Active Substance: METHOTREXATE
     Dosage: ON DAYS 3 AND 6
     Route: 065
  33. GANCICLOVIR [Concomitant]
     Active Substance: GANCICLOVIR
     Indication: Cytomegalovirus test
  34. GANCICLOVIR [Concomitant]
     Active Substance: GANCICLOVIR
     Route: 065
  35. GANCICLOVIR [Concomitant]
     Active Substance: GANCICLOVIR
     Route: 065
  36. GANCICLOVIR [Concomitant]
     Active Substance: GANCICLOVIR

REACTIONS (1)
  - Drug ineffective [Unknown]
